FAERS Safety Report 8269063-X (Version None)
Quarter: 2012Q2

REPORT INFORMATION
  Report Type: 
  Country: None (occurrence: None)
  Receive Date: 20120409
  Receipt Date: 20120404
  Transmission Date: 20120825
  Serious: Yes (Hospitalization)
  Sender: FDA-Public Use
  Company Number: US-PFIZER INC-2012025387

PATIENT
  Sex: Female
  Weight: 85.261 kg

DRUGS (8)
  1. CELEBREX [Suspect]
     Indication: NERVE INJURY
     Dosage: 200 MG, DAILY
  2. NEURONTIN [Suspect]
     Indication: PAIN MANAGEMENT
     Dosage: UNK
  3. LYRICA [Suspect]
     Indication: NERVE INJURY
     Dosage: 200 MG, 3X/DAY
  4. CELEBREX [Suspect]
     Indication: HERPES ZOSTER
  5. METFORMIN [Concomitant]
     Indication: TYPE 1 DIABETES MELLITUS
     Dosage: 500 MG, 2X/DAY
  6. LYRICA [Suspect]
     Indication: PAIN MANAGEMENT
     Dosage: UNK
  7. LYRICA [Suspect]
     Indication: HERPES ZOSTER
  8. CELEBREX [Suspect]
     Indication: ARTHRITIS
     Dosage: UNK

REACTIONS (1)
  - NERVE INJURY [None]
